FAERS Safety Report 8696429 (Version 2)
Quarter: 2013Q1

REPORT INFORMATION
  Report Type: Spontaneous
  Country: BR (occurrence: BR)
  Receive Date: 20120801
  Receipt Date: 20130319
  Transmission Date: 20140127
  Serious: Yes (Hospitalization, Other)
  Sender: FDA-Public Use
  Company Number: PHHY2012BR064333

PATIENT
  Sex: Female
  Weight: 64 kg

DRUGS (7)
  1. SANDOSTATIN LAR [Suspect]
     Indication: ACROMEGALY
     Dosage: 10 MG (1 AMPOULE OF 10ML), QMO
     Route: 030
     Dates: end: 201207
  2. ALGINAC [Concomitant]
     Indication: OSTEOARTHRITIS
     Dosage: 100 MG, QD
     Route: 048
  3. PREDNISONE [Concomitant]
     Indication: OSTEOARTHRITIS
     Dosage: 1 DF DAILY
     Route: 048
     Dates: start: 19960703
  4. SIMVASTATIN [Concomitant]
     Indication: HYPOTHYROIDISM
     Dosage: 20 MG, QD (01 TABLET AT NIGHT)
     Route: 048
     Dates: start: 201207
  5. SIMVASTATIN [Concomitant]
     Indication: BLOOD CHOLESTEROL INCREASED
  6. PURAN T4 [Concomitant]
     Indication: HYPOTHYROIDISM
     Dosage: 125 UG, QD
     Dates: start: 19960703
  7. NIMESULIDE [Concomitant]
     Indication: OSTEOARTHRITIS
     Dosage: 02 DF, QD

REACTIONS (9)
  - Thrombosis [Recovered/Resolved]
  - Anaemia [Recovered/Resolved]
  - Pallor [Recovered/Resolved]
  - Fatigue [Recovered/Resolved]
  - Asthenia [Recovered/Resolved]
  - Osteoarthritis [Not Recovered/Not Resolved]
  - Gait disturbance [Not Recovered/Not Resolved]
  - Local swelling [Not Recovered/Not Resolved]
  - Blood cholesterol increased [Not Recovered/Not Resolved]
